FAERS Safety Report 4984838-8 (Version None)
Quarter: 2006Q2

REPORT INFORMATION
  Report Type: 
  Country: None (occurrence: None)
  Receive Date: 20060426
  Receipt Date: 20060426
  Transmission Date: 20061013
  Serious: Yes (Death)
  Sender: FDA-Public Use
  Company Number: None

PATIENT
  Age: 17 Year
  Sex: Male
  Weight: 81.6475 kg

DRUGS (3)
  1. ADDERALL XR 25 [Suspect]
     Indication: ATTENTION DEFICIT/HYPERACTIVITY DISORDER
     Dosage: ADDERALL XR   ONCE DAILY  PO
     Route: 048
     Dates: start: 20020305, end: 20060422
  2. LAMICTAL [Concomitant]
  3. SYNTHROID [Concomitant]

REACTIONS (1)
  - CIRCULATORY COLLAPSE [None]
